FAERS Safety Report 25049555 (Version 2)
Quarter: 2025Q1

REPORT INFORMATION
  Report Type: Report from Study
  Country: AR (occurrence: AR)
  Receive Date: 20250307
  Receipt Date: 20250324
  Transmission Date: 20250409
  Serious: Yes (Other)
  Sender: TAKEDA
  Company Number: AR-TAKEDA-2025TUS023983

PATIENT
  Age: 31 Year
  Sex: Female

DRUGS (11)
  1. TEDUGLUTIDE [Suspect]
     Active Substance: TEDUGLUTIDE
     Indication: Short-bowel syndrome
     Dosage: 3.2 MILLIGRAM, QD
     Dates: start: 20220309, end: 20231023
  2. TEDUGLUTIDE [Suspect]
     Active Substance: TEDUGLUTIDE
  3. TEDUGLUTIDE [Suspect]
     Active Substance: TEDUGLUTIDE
  4. TEDUGLUTIDE [Suspect]
     Active Substance: TEDUGLUTIDE
  5. LOPERAMIDE [Concomitant]
     Active Substance: LOPERAMIDE
     Indication: Short-bowel syndrome
     Dosage: 2 MILLIGRAM, QD
     Dates: start: 20240228, end: 20241017
  6. CHOLESTYRAMINE [Concomitant]
     Active Substance: CHOLESTYRAMINE
     Indication: Prophylaxis
     Dosage: 4 GRAM, SINGLE
     Dates: start: 20240228, end: 20241017
  7. RANITIDINE [Concomitant]
     Active Substance: RANITIDINE
     Indication: Prophylaxis
  8. ENOXAPARIN [Concomitant]
     Active Substance: ENOXAPARIN
     Dosage: 60 MILLIGRAM, QD
     Dates: start: 20240228
  9. RIFAMPIN [Concomitant]
     Active Substance: RIFAMPIN
     Dosage: 300 MILLIGRAM, QD
     Dates: start: 20240228, end: 20241017
  10. ISONIAZID [Concomitant]
     Active Substance: ISONIAZID
     Dosage: 150 MILLIGRAM, QD
     Dates: start: 20240228, end: 20241017
  11. OMEPRAZOLE [Concomitant]
     Active Substance: OMEPRAZOLE
     Dosage: 20 MILLIGRAM, QD
     Dates: start: 20240228, end: 20241017

REACTIONS (2)
  - Tuberculosis [Recovered/Resolved]
  - Erythema nodosum [Recovered/Resolved]

NARRATIVE: CASE EVENT DATE: 20230113
